FAERS Safety Report 6285216-4 (Version None)
Quarter: 2009Q3

REPORT INFORMATION
  Report Type: 
  Country: None (occurrence: None)
  Receive Date: 20090727
  Receipt Date: 20090721
  Transmission Date: 20100115
  Serious: Yes (Hospitalization)
  Sender: FDA-Public Use
  Company Number: PHHY2009NL30359

PATIENT
  Age: 46 Year
  Sex: Male

DRUGS (10)
  1. DICLOFENAC [Interacting]
     Indication: ARTHRALGIA
     Dosage: 50 MG, BID
  2. TENOFOVIR DISOPROXIL FUMARATE [Suspect]
     Dosage: 300 MG, QD
  3. COTRIM [Suspect]
     Dosage: 480 MG, QD
  4. LOPINAVIR [Concomitant]
  5. RITONAVIR [Concomitant]
  6. LAMIVUDINE [Concomitant]
  7. PROMETHAZINE [Concomitant]
  8. DIAZEPAM [Concomitant]
  9. FLUCONAZOLE [Concomitant]
  10. ESOMEPRAZOLE MAGNESIUM [Concomitant]

REACTIONS (2)
  - DRUG INTERACTION [None]
  - RENAL FAILURE [None]
